FAERS Safety Report 17272928 (Version 1)
Quarter: 2020Q1

REPORT INFORMATION
  Report Type: Spontaneous
  Country: US (occurrence: US)
  Receive Date: 20200115
  Receipt Date: 20200115
  Transmission Date: 20200409
  Serious: No
  Sender: FDA-Public Use
  Company Number: None

PATIENT
  Age: 51 Year
  Sex: Female

DRUGS (7)
  1. AMBRISENTAN [Suspect]
     Active Substance: AMBRISENTAN
     Indication: GASTROOESOPHAGEAL REFLUX DISEASE
     Route: 048
  2. LATANOPROST. [Concomitant]
     Active Substance: LATANOPROST
  3. METOPROLOL. [Concomitant]
     Active Substance: METOPROLOL
  4. FOLIC ACID. [Concomitant]
     Active Substance: FOLIC ACID
  5. VITAMIN D [Concomitant]
     Active Substance: VITAMIN D NOS
  6. ALLOPURINOL. [Concomitant]
     Active Substance: ALLOPURINOL
  7. BRIMONIDINE [Concomitant]
     Active Substance: BRIMONIDINE TARTRATE

REACTIONS (2)
  - Therapy change [None]
  - Hepatic enzyme increased [None]

NARRATIVE: CASE EVENT DATE: 20200114
